FAERS Safety Report 14578765 (Version 12)
Quarter: 2019Q3

REPORT INFORMATION
  Report Type: Spontaneous
  Country: GB (occurrence: GB)
  Receive Date: 20180227
  Receipt Date: 20190808
  Transmission Date: 20191004
  Serious: Yes (Hospitalization, Other)
  Sender: FDA-Public Use
  Company Number: PHHY2017GB201235

PATIENT
  Age: 28 Year
  Sex: Female

DRUGS (7)
  1. SULFASALAZINE. [Interacting]
     Active Substance: SULFASALAZINE
     Dosage: 500 MG, BID
     Route: 065
  2. HYDROXYCHLOROQUINE [Concomitant]
     Active Substance: HYDROXYCHLOROQUINE
     Indication: RHEUMATOID ARTHRITIS
     Dosage: 400 MG
     Route: 065
  3. AMOXICILLIN. [Interacting]
     Active Substance: AMOXICILLIN
     Indication: EAR PAIN
     Route: 065
  4. HYDROXYCHLOROQUINE [Concomitant]
     Active Substance: HYDROXYCHLOROQUINE
     Dosage: 200 MG, UNK
     Route: 065
  5. PREDNISOLONE. [Suspect]
     Active Substance: PREDNISOLONE
     Dosage: 40 MG
     Route: 065
  6. SULFASALAZINE. [Interacting]
     Active Substance: SULFASALAZINE
     Indication: RHEUMATOID ARTHRITIS
     Dosage: 1000 MG, BID
     Route: 065
  7. PREDNISOLONE. [Suspect]
     Active Substance: PREDNISOLONE
     Indication: DRUG REACTION WITH EOSINOPHILIA AND SYSTEMIC SYMPTOMS
     Dosage: 60 MG
     Route: 065

REACTIONS (30)
  - Purpura [Recovering/Resolving]
  - White blood cell count increased [Recovering/Resolving]
  - C-reactive protein increased [Recovering/Resolving]
  - Blood urine present [Recovering/Resolving]
  - Alanine aminotransferase increased [Recovering/Resolving]
  - Drug interaction [Recovering/Resolving]
  - Fatigue [Recovering/Resolving]
  - Pyrexia [Recovering/Resolving]
  - Hallucination [Recovering/Resolving]
  - Pain [Recovering/Resolving]
  - Lymphocytosis [Recovering/Resolving]
  - Face oedema [Recovering/Resolving]
  - Lymphadenopathy [Recovering/Resolving]
  - Rash erythematous [Recovering/Resolving]
  - Euphoric mood [Recovering/Resolving]
  - Roseolovirus test positive [Unknown]
  - Pharyngitis [Recovering/Resolving]
  - Off label use [Unknown]
  - Nausea [Recovering/Resolving]
  - Aspartate aminotransferase increased [Recovering/Resolving]
  - Blood albumin decreased [Recovering/Resolving]
  - Ear pain [Recovering/Resolving]
  - Drug reaction with eosinophilia and systemic symptoms [Recovering/Resolving]
  - Vomiting [Recovering/Resolving]
  - Rash maculo-papular [Recovering/Resolving]
  - Splenomegaly [Recovering/Resolving]
  - Blood bilirubin increased [Recovering/Resolving]
  - Serum ferritin increased [Recovering/Resolving]
  - Chest pain [Recovering/Resolving]
  - Insomnia [Recovering/Resolving]
